FAERS Safety Report 5499105-6 (Version None)
Quarter: 2007Q4

REPORT INFORMATION
  Report Type: 
  Country: None (occurrence: None)
  Receive Date: 20071026
  Receipt Date: 20070531
  Transmission Date: 20080405
  Serious: No
  Sender: FDA-Public Use
  Company Number: A0653687A

PATIENT
  Age: 79 Year
  Sex: Female

DRUGS (6)
  1. ADVAIR DISKUS 100/50 [Suspect]
     Indication: CHRONIC OBSTRUCTIVE PULMONARY DISEASE
     Dosage: 1PUFF TWICE PER DAY
     Route: 055
  2. PREMARIN [Concomitant]
  3. ATIVAN [Concomitant]
  4. BENICAR [Concomitant]
  5. CLARITIN [Concomitant]
  6. SPIRIVA [Concomitant]

REACTIONS (2)
  - CANDIDIASIS [None]
  - LARYNGITIS [None]
